FAERS Safety Report 8449264-8 (Version None)
Quarter: 2012Q2

REPORT INFORMATION
  Report Type: 
  Country: None (occurrence: None)
  Receive Date: 20120619
  Receipt Date: 20120611
  Transmission Date: 20120825
  Serious: Yes (Other)
  Sender: FDA-Public Use
  Company Number: DE-BAXTER-2011BH039131

PATIENT
  Sex: Female
  Weight: 100 kg

DRUGS (5)
  1. ARTISS [Suspect]
     Indication: ABDOMINOPLASTY
     Route: 065
     Dates: start: 20111202
  2. FOLIC ACID [Concomitant]
     Route: 065
  3. PANTOPRAZOLE [Concomitant]
     Route: 065
  4. LEVOTHYROXINE SODIUM [Concomitant]
     Route: 065
  5. FERROUS SULFATE TAB [Concomitant]
     Route: 065

REACTIONS (2)
  - WOUND DEHISCENCE [None]
  - POSTOPERATIVE WOUND INFECTION [None]
